FAERS Safety Report 5413383-0 (Version None)
Quarter: 2007Q3

REPORT INFORMATION
  Report Type: 
  Country: None (occurrence: None)
  Receive Date: 20070814
  Receipt Date: 20070810
  Transmission Date: 20080115
  Serious: Yes (Hospitalization)
  Sender: FDA-Public Use
  Company Number: TW-JNJFOC-20070802376

PATIENT

DRUGS (2)
  1. CONCERTA [Suspect]
     Indication: ATTENTION DEFICIT/HYPERACTIVITY DISORDER
     Dosage: TAKING 2, 18MG TABLETS IN AM
     Route: 048
  2. RITALIN [Concomitant]

REACTIONS (1)
  - CEREBRAL HAEMATOMA [None]
